FAERS Safety Report 12402097 (Version 2)
Quarter: 2016Q2

REPORT INFORMATION
  Report Type: Report from Study
  Country: DE (occurrence: DE)
  Receive Date: 20160525
  Receipt Date: 20160531
  Transmission Date: 20160815
  Serious: Yes (Hospitalization)
  Sender: FDA-Public Use
  Company Number: DE-ROCHE-1735096

PATIENT
  Age: 66 Year
  Sex: Male
  Weight: 75 kg

DRUGS (10)
  1. HYDROCHLOROTHIAZIDE. [Concomitant]
     Active Substance: HYDROCHLOROTHIAZIDE
     Route: 065
  2. FOLINIC ACID [Suspect]
     Active Substance: LEUCOVORIN
     Indication: COLORECTAL CANCER METASTATIC
     Dosage: HE RECEIVED HIS MOST RECENT DOSE OF FOLFOX (FOLINIC ACID, FLUOROURACIL AND OXALIPLATIN) PRIOR TO THE
     Route: 042
     Dates: start: 20160316
  3. 5-FLUOROURACIL [Suspect]
     Active Substance: FLUOROURACIL
     Route: 042
  4. CANDESARTAN [Concomitant]
     Active Substance: CANDESARTAN
     Route: 065
  5. BEVACIZUMAB [Suspect]
     Active Substance: BEVACIZUMAB
     Indication: COLORECTAL CANCER METASTATIC
     Dosage: DATE OF MOST RECENT DOSE PRIOR TO THE ADVERSE EVENT: 16/MAR/2016 AT 8:15?DATE OF MOST RECENT DOSE PR
     Route: 042
     Dates: start: 20160316
  6. IMODIUM AKUT [Concomitant]
     Active Substance: LOPERAMIDE
     Route: 065
     Dates: start: 20160409
  7. OXALIPLATIN. [Suspect]
     Active Substance: OXALIPLATIN
     Indication: COLORECTAL CANCER METASTATIC
     Dosage: HE RECEIVED HIS MOST RECENT DOSE OF FOLFOX (FOLINIC ACID, FLUOROURACIL AND OXALIPLATIN) PRIOR TO THE
     Route: 042
     Dates: start: 20160316
  8. ONDANSETRON [Concomitant]
     Active Substance: ONDANSETRON
     Route: 065
     Dates: start: 20160409
  9. 5-FLUOROURACIL [Suspect]
     Active Substance: FLUOROURACIL
     Indication: COLORECTAL CANCER METASTATIC
     Dosage: HE RECEIVED HIS MOST RECENT DOSE OF FOLFOX (FOLINIC ACID, FLUOROURACIL AND OXALIPLATIN) PRIOR TO THE
     Route: 042
     Dates: start: 20160316
  10. MOTILIUM [Concomitant]
     Active Substance: DOMPERIDONE
     Route: 065
     Dates: start: 20160409

REACTIONS (2)
  - Dehydration [Recovered/Resolved]
  - General physical health deterioration [Recovered/Resolved]

NARRATIVE: CASE EVENT DATE: 20160329
